FAERS Safety Report 7502796-9 (Version None)
Quarter: 2011Q2

REPORT INFORMATION
  Report Type: 
  Country: None (occurrence: None)
  Receive Date: 20110524
  Receipt Date: 20110524
  Transmission Date: 20111010
  Serious: Yes (Hospitalization)
  Sender: FDA-Public Use
  Company Number: None

PATIENT
  Sex: Female
  Weight: 42 kg

DRUGS (5)
  1. SUNITINIB MALATE [Suspect]
     Indication: RENAL CANCER METASTATIC
     Dosage: 50 MG ONCE DAILY
     Dates: start: 20101110, end: 20110405
  2. PHENERGAN HCL [Concomitant]
  3. LACTULOSE [Concomitant]
  4. COMPAZINE [Concomitant]
  5. REGLAN [Concomitant]

REACTIONS (3)
  - NEOPLASM PROGRESSION [None]
  - ABDOMINAL PAIN [None]
  - NEOPLASM MALIGNANT [None]
